FAERS Safety Report 12880644 (Version 6)
Quarter: 2017Q2

REPORT INFORMATION
  Report Type: Report from Study
  Country: BR (occurrence: BR)
  Receive Date: 20161025
  Receipt Date: 20170414
  Transmission Date: 20170830
  Serious: Yes (Other)
  Sender: FDA-Public Use
  Company Number: BR-GLAXOSMITHKLINE-BR2015GSK152803

PATIENT
  Age: 43 Year
  Sex: Female
  Weight: 66 kg

DRUGS (7)
  1. BELIMUMAB [Suspect]
     Active Substance: BELIMUMAB
     Indication: SYSTEMIC LUPUS ERYTHEMATOSUS
     Dosage: UNK
     Dates: start: 20150928
  2. BELIMUMAB [Suspect]
     Active Substance: BELIMUMAB
     Dosage: UNK
     Dates: start: 20161227
  3. PREDNISONE. [Concomitant]
     Active Substance: PREDNISONE
  4. BELIMUMAB [Suspect]
     Active Substance: BELIMUMAB
     Dosage: UNK
     Dates: start: 20170124
  5. BELIMUMAB [Suspect]
     Active Substance: BELIMUMAB
     Dosage: UNK
     Dates: start: 20170221
  6. AZATHIOPRINE. [Concomitant]
     Active Substance: AZATHIOPRINE
  7. HYDROXYCHLOROQUINE SULFATE. [Concomitant]
     Active Substance: HYDROXYCHLOROQUINE SULFATE

REACTIONS (11)
  - Eye pruritus [Unknown]
  - Headache [Recovering/Resolving]
  - Drug dose omission [Unknown]
  - Vomiting [Unknown]
  - Inappropriate schedule of drug administration [Recovered/Resolved]
  - Pain [Recovering/Resolving]
  - Eye pain [Unknown]
  - Somnolence [Recovering/Resolving]
  - Nausea [Unknown]
  - Herpes ophthalmic [Unknown]
  - Malaise [Unknown]

NARRATIVE: CASE EVENT DATE: 20160924
